FAERS Safety Report 9469808 (Version 2)
Quarter: 2013Q3

REPORT INFORMATION
  Report Type: Spontaneous
  Country: AT (occurrence: AT)
  Receive Date: 20130822
  Receipt Date: 20130822
  Transmission Date: 20140515
  Serious: Yes (Life-Threatening, Hospitalization)
  Sender: FDA-Public Use
  Company Number: AT-JNJFOC-20130717447

PATIENT
  Age: 72 Year
  Sex: Male
  Weight: 75 kg

DRUGS (11)
  1. XARELTO [Suspect]
     Indication: CEREBROVASCULAR ACCIDENT PROPHYLAXIS
     Route: 048
  2. XARELTO [Suspect]
     Indication: CEREBROVASCULAR ACCIDENT PROPHYLAXIS
     Route: 048
     Dates: start: 201307, end: 20130722
  3. XARELTO [Suspect]
     Indication: ATRIAL FIBRILLATION
     Route: 048
  4. XARELTO [Suspect]
     Indication: ATRIAL FIBRILLATION
     Route: 048
     Dates: start: 201307, end: 20130722
  5. EUTHYROX [Concomitant]
     Route: 065
  6. TRITACE [Concomitant]
     Route: 065
  7. LASIX [Concomitant]
     Route: 065
  8. CONCOR [Concomitant]
     Route: 065
  9. PANTOLOC [Concomitant]
     Route: 065
  10. HYDAL [Concomitant]
     Route: 065
  11. HUMALOG [Concomitant]
     Route: 065

REACTIONS (7)
  - Spontaneous haematoma [Not Recovered/Not Resolved]
  - Gastrointestinal haemorrhage [Not Recovered/Not Resolved]
  - Hypoaesthesia [Unknown]
  - Peroneal nerve palsy [Unknown]
  - Gastritis erosive [Not Recovered/Not Resolved]
  - Anaemia [Unknown]
  - Muscle haemorrhage [Unknown]
